FAERS Safety Report 9527645 (Version 1)
Quarter: 2013Q3

REPORT INFORMATION
  Report Type: Spontaneous
  Country: US (occurrence: None)
  Receive Date: 20130913
  Receipt Date: 20130913
  Transmission Date: 20140515
  Serious: Yes (Other)
  Sender: FDA-Public Use
  Company Number: None

PATIENT
  Age: 62 Year
  Sex: Female
  Weight: 83.92 kg

DRUGS (8)
  1. ACTONEL [Suspect]
     Indication: OSTEOPOROSIS
  2. LIPITOR [Concomitant]
  3. MULTIVITAMIN [Concomitant]
  4. GLUCOSAMINE [Concomitant]
  5. CHONDROITIN [Concomitant]
  6. VITAMIN C [Concomitant]
  7. CALTRATA CALCIUM [Concomitant]
  8. VITAMIN D [Concomitant]

REACTIONS (2)
  - Tremor [None]
  - Mastitis [None]
